FAERS Safety Report 16041740 (Version 1)
Quarter: 2019Q1

REPORT INFORMATION
  Report Type: Spontaneous
  Country: US (occurrence: US)
  Receive Date: 20190306
  Receipt Date: 20190306
  Transmission Date: 20190418
  Serious: No
  Sender: FDA-Public Use
  Company Number: US-PFIZER INC-2019096235

PATIENT
  Age: 10 Year
  Sex: Female

DRUGS (2)
  1. GENOTROPIN MQ [Suspect]
     Active Substance: SOMATROPIN
     Dosage: ALTERNATE DAY (1MG AND 1.2MG MINIQUICK, ALTERNATING DOSE, 6 DAYS A WEEK)
  2. GENOTROPIN MQ [Suspect]
     Active Substance: SOMATROPIN
     Dosage: ALTERNATE DAY (1MG AND 1.2MG MINIQUICK, ALTERNATING DOSE, 6 DAYS A WEEK)

REACTIONS (1)
  - Musculoskeletal disorder [Recovered/Resolved]
